FAERS Safety Report 11330299 (Version 1)
Quarter: 2015Q3

REPORT INFORMATION
  Report Type: Spontaneous
  Country: US (occurrence: None)
  Receive Date: 20150730
  Receipt Date: 20150730
  Transmission Date: 20151125
  Serious: Yes (Disabling)
  Sender: FDA-Public Use
  Company Number: None

PATIENT
  Age: 57 Year
  Sex: Female
  Weight: 92.99 kg

DRUGS (13)
  1. LEVOFLOXACIN 500 MG ZYDUS [Suspect]
     Active Substance: LEVOFLOXACIN
     Indication: BRONCHITIS
     Dosage: 1 PILL ONCE DAILY TAKEN BY MOUTH
     Route: 048
     Dates: start: 20150123, end: 20150131
  2. LISINOPRIL. [Concomitant]
     Active Substance: LISINOPRIL
  3. ATENOLOL. [Concomitant]
     Active Substance: ATENOLOL
  4. BIOTICS RESEARCH B12-2000 [Concomitant]
  5. BIOTICS RESEARCH BIO-D-MULSION FORTE [Concomitant]
  6. STANDARD PROCESS CALCIUM LACTATE [Concomitant]
  7. PROMETRIUM [Concomitant]
     Active Substance: PROGESTERONE
  8. INNATE RESPONSE FOOD MULTI 3 BIOMAX (MULTIVITAMIN) [Concomitant]
  9. STANDARD PROCESS LIVAPLEX [Concomitant]
  10. YOUNG LIVING ESSENTIAL OILS LAVENDER, LEMON, PEPPERMINT, COPAIBA, LEMONGRASS, FRANKINCENSE [Concomitant]
  11. MOTRIN [Concomitant]
     Active Substance: IBUPROFEN
  12. ASPIRIIN [Concomitant]
  13. EVAMIST TOPICAL [Concomitant]

REACTIONS (3)
  - Tendonitis [None]
  - Arthralgia [None]
  - Tendon pain [None]

NARRATIVE: CASE EVENT DATE: 20150131
